FAERS Safety Report 9056804 (Version 1)
Quarter: 2013Q1

REPORT INFORMATION
  Report Type: Report from Study
  Country: US (occurrence: US)
  Receive Date: 20130201
  Receipt Date: 20130201
  Transmission Date: 20140127
  Serious: Yes (Other)
  Sender: FDA-Public Use
  Company Number: US-BAYER-2013-010885

PATIENT
  Age: 58 Year
  Sex: Female

DRUGS (1)
  1. STIVARGA [Suspect]
     Indication: COLON CANCER
     Dosage: 160 MG, QD
     Dates: start: 20121222, end: 20130110

REACTIONS (5)
  - Rash [None]
  - Pyrexia [None]
  - Vomiting [None]
  - Fatigue [None]
  - Decreased appetite [None]
